FAERS Safety Report 7874919-3 (Version None)
Quarter: 2011Q4

REPORT INFORMATION
  Report Type: 
  Country: None (occurrence: None)
  Receive Date: 20111031
  Receipt Date: 20111024
  Transmission Date: 20120403
  Serious: Yes (Hospitalization)
  Sender: FDA-Public Use
  Company Number: CN-JNJFOC-20111010284

PATIENT
  Age: 4 Month
  Sex: Male

DRUGS (2)
  1. CONCENTRATED MOTRIN INFANTS DROPS [Suspect]
     Indication: PYREXIA
     Route: 048
     Dates: start: 20111020, end: 20111020
  2. CONCENTRATED MOTRIN INFANTS DROPS [Suspect]
     Route: 048

REACTIONS (3)
  - HYPERSENSITIVITY [None]
  - ALANINE AMINOTRANSFERASE INCREASED [None]
  - ANGIOEDEMA [None]
